FAERS Safety Report 15235935 (Version 9)
Quarter: 2019Q1

REPORT INFORMATION
  Report Type: Spontaneous
  Country: US (occurrence: US)
  Receive Date: 20180803
  Receipt Date: 20190207
  Transmission Date: 20190417
  Serious: No
  Sender: FDA-Public Use
  Company Number: PHEH2018US032309

PATIENT
  Sex: Female

DRUGS (1)
  1. ZOFRAN ODT [Suspect]
     Active Substance: ONDANSETRON HYDROCHLORIDE
     Indication: MORNING SICKNESS
     Dosage: 4 MG, Q6H, PRN
     Route: 048
     Dates: start: 20120118, end: 201206

REACTIONS (7)
  - Pain [Unknown]
  - Injury [Unknown]
  - Emotional distress [Unknown]
  - Abdominal pain [Unknown]
  - Anxiety [Unknown]
  - Product use in unapproved indication [Unknown]
  - Maternal exposure during pregnancy [Unknown]
